FAERS Safety Report 25072462 (Version 1)
Quarter: 2025Q1

REPORT INFORMATION
  Report Type: Spontaneous
  Country: DE (occurrence: DE)
  Receive Date: 20250313
  Receipt Date: 20250313
  Transmission Date: 20250409
  Serious: Yes (Other)
  Sender: INDOCO REMEDIES LIMITED
  Company Number: DE-PROCTER GAMBLE-PH25001451

PATIENT
  Age: 32 Year
  Sex: Female

DRUGS (2)
  1. CETIRIZINE HYDROCHLORIDE [Suspect]
     Active Substance: CETIRIZINE HYDROCHLORIDE
     Indication: Product used for unknown indication
     Route: 048
     Dates: start: 20250220
  2. ACETAMINOPHEN\DEXTROMETHORPHAN HYDROBROMIDE\DOXYLAMINE\EPHEDRINE SULFA [Suspect]
     Active Substance: ACETAMINOPHEN\DEXTROMETHORPHAN HYDROBROMIDE\DOXYLAMINE\EPHEDRINE SULFATE
     Indication: Product used for unknown indication
     Dosage: 90 MILLILITRE,1 ONLY NIGHT (ORAL LIQUID)
     Route: 048
     Dates: start: 20250220

REACTIONS (6)
  - Intentional product use issue [Unknown]
  - Suicide attempt [Unknown]
  - Intentional self-injury [Unknown]
  - Intentional overdose [Unknown]
  - Restlessness [Unknown]
  - Agitation [Unknown]

NARRATIVE: CASE EVENT DATE: 20250220
